FAERS Safety Report 5725263-1 (Version None)
Quarter: 2008Q2

REPORT INFORMATION
  Report Type: 
  Country: None (occurrence: None)
  Receive Date: 20080501
  Receipt Date: 20080428
  Transmission Date: 20081010
  Serious: Yes (Disabling, Other)
  Sender: FDA-Public Use
  Company Number: JP-ASTRAZENECA-2008AP02677

PATIENT
  Age: 71 Year
  Sex: Male

DRUGS (1)
  1. XYLOCAINE [Suspect]
     Indication: EPIDURAL ANAESTHESIA
     Route: 008

REACTIONS (2)
  - BLOOD PRESSURE DECREASED [None]
  - BRADYARRHYTHMIA [None]
